FAERS Safety Report 15750875 (Version 1)
Quarter: 2018Q4

REPORT INFORMATION
  Report Type: Spontaneous
  Country: JP (occurrence: JP)
  Receive Date: 20181221
  Receipt Date: 20181221
  Transmission Date: 20190205
  Serious: Yes (Hospitalization)
  Sender: FDA-Public Use
  Company Number: JP-HERITAGE PHARMACEUTICALS-2018HTG00466

PATIENT
  Age: 76 Year
  Sex: Female
  Weight: 28.6 kg

DRUGS (2)
  1. METHIMAZOLE. [Suspect]
     Active Substance: METHIMAZOLE
     Indication: BASEDOW^S DISEASE
     Dosage: 10 MG
     Route: 065
     Dates: start: 2017
  2. POTASSIUM IODIDE. [Concomitant]
     Active Substance: POTASSIUM IODIDE
     Indication: BASEDOW^S DISEASE
     Dosage: 50 MG
     Route: 065

REACTIONS (1)
  - Pancreatitis acute [Recovered/Resolved]
